FAERS Safety Report 12400248 (Version 1)
Quarter: 2016Q2

REPORT INFORMATION
  Report Type: Spontaneous
  Country: US (occurrence: None)
  Receive Date: 20160524
  Receipt Date: 20160524
  Transmission Date: 20160815
  Serious: Yes (Hospitalization, Other)
  Sender: FDA-Public Use
  Company Number: None

PATIENT
  Age: 68 Year
  Sex: Female
  Weight: 80.74 kg

DRUGS (4)
  1. CLINDAMYCIN HCL 150MG CAPSULE [Suspect]
     Active Substance: CLINDAMYCIN HYDROCHLORIDE
     Indication: GINGIVITIS
     Route: 048
     Dates: start: 20160224, end: 20160307
  2. LEVOTHYROXINE. [Concomitant]
     Active Substance: LEVOTHYROXINE
  3. FOSINOPRIL-HCTZ [Concomitant]
  4. ASA [Concomitant]
     Active Substance: ASPIRIN

REACTIONS (5)
  - Nausea [None]
  - Diarrhoea [None]
  - Abdominal pain [None]
  - Clostridium test positive [None]
  - Vomiting [None]

NARRATIVE: CASE EVENT DATE: 20160401
